FAERS Safety Report 18924266 (Version 1)
Quarter: 2021Q1

REPORT INFORMATION
  Report Type: Spontaneous
  Country: US (occurrence: US)
  Receive Date: 20210222
  Receipt Date: 20210222
  Transmission Date: 20210420
  Serious: No
  Sender: FDA-Public Use
  Company Number: US-PFIZER INC-2019340871

PATIENT
  Age: 68 Year
  Sex: Female

DRUGS (1)
  1. SUTENT [Suspect]
     Active Substance: SUNITINIB MALATE
     Indication: CONNECTIVE TISSUE NEOPLASM
     Dosage: 25 MG, CYCLIC (TAKE 1 CAPSULE (25 MG TOTAL) BY MOUTH DAILY, TAKE FOR 4 WEEKS AND THEN 2 WEEKS BREAK)
     Route: 048

REACTIONS (4)
  - Circumstance or information capable of leading to medication error [Unknown]
  - Off label use [Unknown]
  - Gait disturbance [Unknown]
  - Product use in unapproved indication [Unknown]
